FAERS Safety Report 6348276-8 (Version None)
Quarter: 2009Q4

REPORT INFORMATION
  Report Type: 
  Country: None (occurrence: None)
  Receive Date: 20090908
  Receipt Date: 20090831
  Transmission Date: 20100525
  Serious: Yes (Hospitalization, Congenital Anomaly, Other)
  Sender: FDA-Public Use
  Company Number: 2009SP021569

PATIENT
  Sex: Female
  Weight: 1.21 kg

DRUGS (10)
  1. PEG-INTRON [Suspect]
     Indication: DRUG EXPOSURE DURING PREGNANCY
     Dates: start: 20080910, end: 20090527
  2. PEG-INTRON [Suspect]
  3. RIBAVIRIN [Suspect]
     Indication: DRUG EXPOSURE DURING PREGNANCY
     Dates: start: 20080910, end: 20090601
  4. RIBAVIRIN [Suspect]
  5. LOXOPROFEN (LOXOPROFEN) [Suspect]
     Indication: DRUG EXPOSURE DURING PREGNANCY
     Dates: start: 20080911, end: 20090606
  6. LANSOPRAZOLE [Suspect]
     Indication: DRUG EXPOSURE DURING PREGNANCY
     Dates: start: 20080919, end: 20090617
  7. ETIZOLAM (ETIZOLAM) [Suspect]
     Indication: DRUG EXPOSURE DURING PREGNANCY
     Dates: start: 20080916, end: 20090531
  8. DOMPERIDONE (DOMPERIDONE) [Suspect]
     Indication: DRUG EXPOSURE DURING PREGNANCY
     Dates: start: 20081029, end: 20090110
  9. HIRDOID SOFT (HEPARINOID) (HEPARINOID) [Suspect]
     Indication: DRUG EXPOSURE DURING PREGNANCY
     Dates: start: 20081105, end: 20081224
  10. RESTAMIN (DIPHENHYDRAMINE) [Suspect]
     Indication: PREGNANCY
     Dates: start: 20080913, end: 20090311

REACTIONS (7)
  - CAESAREAN SECTION [None]
  - CEREBRAL VENTRICLE DILATATION [None]
  - CONGENITAL ANOMALY [None]
  - HYDROCEPHALUS [None]
  - MENINGOMYELOCELE [None]
  - PATERNAL DRUGS AFFECTING FOETUS [None]
  - SMALL FOR DATES BABY [None]
